FAERS Safety Report 21986211 (Version 1)
Quarter: 2023Q1

REPORT INFORMATION
  Report Type: Other
  Country: CA (occurrence: CA)
  Receive Date: 20230213
  Receipt Date: 20230213
  Transmission Date: 20230418
  Serious: Yes (Other)
  Sender: FDA-Public Use
  Company Number: CA-PFIZER INC-202300060482

PATIENT
  Sex: Female

DRUGS (10)
  1. AZITHROMYCIN [Suspect]
     Active Substance: AZITHROMYCIN
     Indication: Lactobacillus infection
     Dosage: 1 G, 1X/DAY
     Route: 048
  2. AZITHROMYCIN [Suspect]
     Active Substance: AZITHROMYCIN
     Indication: Antibiotic therapy
  3. DEXTROSE [Suspect]
     Active Substance: DEXTROSE
     Route: 065
  4. AMPICILLIN [Suspect]
     Active Substance: AMPICILLIN
     Indication: Lactobacillus infection
     Dosage: 1 G, (1 EVERY 6 HOURS)
     Route: 042
  5. AMPICILLIN [Suspect]
     Active Substance: AMPICILLIN
     Indication: Antibiotic therapy
  6. GENTAMICIN SULFATE [Suspect]
     Active Substance: GENTAMICIN SULFATE
     Indication: Lactobacillus infection
     Dosage: 80 MG, 1 EVERY 8 HOURS
     Route: 042
  7. GENTAMICIN SULFATE [Suspect]
     Active Substance: GENTAMICIN SULFATE
     Indication: Antibiotic therapy
  8. MAGNESIUM SULFATE [Suspect]
     Active Substance: MAGNESIUM SULFATE
     Indication: Nervous system disorder prophylaxis
     Dosage: UNK
     Route: 065
  9. ATOSIBAN [Suspect]
     Active Substance: ATOSIBAN
     Dosage: UNK
     Route: 065
  10. BETAMETHASONE [Suspect]
     Active Substance: BETAMETHASONE
     Dosage: 12 MG, 1X/DAY
     Route: 030

REACTIONS (4)
  - Delivery [Unknown]
  - Maternal exposure during pregnancy [Unknown]
  - Normal labour [Unknown]
  - Premature delivery [Unknown]
